FAERS Safety Report 18043698 (Version 1)
Quarter: 2020Q3

REPORT INFORMATION
  Report Type: Spontaneous
  Country: GB (occurrence: GB)
  Receive Date: 20200720
  Receipt Date: 20200720
  Transmission Date: 20201103
  Serious: Yes (Death)
  Sender: FDA-Public Use
  Company Number: GB-DEXPHARM-20200578

PATIENT
  Age: 63 Year
  Sex: Male
  Weight: 74 kg

DRUGS (5)
  1. OMEPRAZOLE. [Suspect]
     Active Substance: OMEPRAZOLE
     Dates: start: 20200525, end: 20200603
  2. TINZAPARIN [Suspect]
     Active Substance: TINZAPARIN
     Dates: start: 20200325, end: 20200603
  3. MESALAZINE [Suspect]
     Active Substance: MESALAMINE
     Dates: start: 202003, end: 202005
  4. ADALIMUMAB [Suspect]
     Active Substance: ADALIMUMAB
     Indication: COLITIS ULCERATIVE
     Dates: start: 20200528, end: 20200528
  5. NYSTATIN. [Suspect]
     Active Substance: NYSTATIN
     Dates: start: 20200531, end: 20200610

REACTIONS (1)
  - Toxic epidermal necrolysis [Fatal]

NARRATIVE: CASE EVENT DATE: 20200607
